FAERS Safety Report 6476161-X (Version None)
Quarter: 2009Q4

REPORT INFORMATION
  Report Type: 
  Country: None (occurrence: None)
  Receive Date: 20091204
  Receipt Date: 20091126
  Transmission Date: 20100525
  Serious: Yes (Death)
  Sender: FDA-Public Use
  Company Number: CA-ABBOTT-09P-028-0610827-00

PATIENT
  Sex: Male

DRUGS (8)
  1. LUPRON DEPOT [Suspect]
     Indication: PROSTATE CANCER
     Route: 050
     Dates: start: 20070730, end: 20090811
  2. NORVASC [Concomitant]
     Indication: HYPERTENSION
     Route: 048
     Dates: start: 20000101
  3. OXAZEPAM [Concomitant]
     Indication: INSOMNIA
     Route: 048
     Dates: start: 20050101
  4. NOVO-SEMIDE [Concomitant]
     Indication: OEDEMA
     Route: 048
     Dates: start: 20030101
  5. PANTOPRAZOLE [Concomitant]
     Indication: PROPHYLAXIS
     Route: 048
     Dates: start: 20000101
  6. APO-BISOPROLOL [Concomitant]
     Indication: DRUG USE FOR UNKNOWN INDICATION
     Route: 048
     Dates: start: 20000101
  7. TARO-WARFARIN [Concomitant]
     Indication: INTERNATIONAL NORMALISED RATIO
     Route: 048
     Dates: start: 20000101
  8. VASOTEC [Concomitant]
     Indication: DRUG USE FOR UNKNOWN INDICATION
     Route: 048
     Dates: start: 20030101

REACTIONS (2)
  - DYSPHAGIA [None]
  - DYSPNOEA [None]
